FAERS Safety Report 21316249 (Version 1)
Quarter: 2022Q3

REPORT INFORMATION
  Report Type: Spontaneous
  Country: US (occurrence: US)
  Receive Date: 20220910
  Receipt Date: 20220910
  Transmission Date: 20221027
  Serious: No
  Sender: FDA-Public Use
  Company Number: US-UNITED THERAPEUTICS-UNT-2022-018410

PATIENT
  Sex: Female

DRUGS (3)
  1. TYVASO [Suspect]
     Active Substance: TREPROSTINIL
     Indication: Pulmonary arterial hypertension
     Dosage: UNK
     Dates: start: 20220519
  2. TYVASO [Suspect]
     Active Substance: TREPROSTINIL
     Dosage: 90 ?G, QID
     Dates: start: 2022
  3. TYVASO [Suspect]
     Active Substance: TREPROSTINIL
     Dosage: 126 ?G, QID
     Dates: start: 2022

REACTIONS (10)
  - Headache [Unknown]
  - Nausea [Unknown]
  - Cough [Unknown]
  - Throat irritation [Unknown]
  - Dysphonia [Unknown]
  - Inflammation [Unknown]
  - Blood pressure systolic increased [Unknown]
  - Dyspnoea exertional [Unknown]
  - Sensitivity to weather change [Unknown]
  - Off label use [Unknown]

NARRATIVE: CASE EVENT DATE: 20220101
